FAERS Safety Report 9182238 (Version 1)
Quarter: 2012Q4

REPORT INFORMATION
  Report Type: 
  Country: BE (occurrence: BE)
  Receive Date: 20121030
  Receipt Date: 20121030
  Transmission Date: 20130627
  Serious: Yes (Other)
  Sender: FDA-Public Use
  Company Number: BE-009507513-1210BEL012016

PATIENT

DRUGS (1)
  1. DIPROSONE [Suspect]

REACTIONS (1)
  - Hypersensitivity [Recovered/Resolved]
